FAERS Safety Report 26152621 (Version 1)
Quarter: 2025Q4

REPORT INFORMATION
  Report Type: Spontaneous
  Country: US (occurrence: US)
  Receive Date: 20251214
  Receipt Date: 20251214
  Transmission Date: 20260118
  Serious: Yes (Hospitalization)
  Sender: BridgeBio Pharma
  Company Number: US-BRIDGEBIO-25US002409

PATIENT

DRUGS (1)
  1. ATTRUBY [Suspect]
     Active Substance: ACORAMIDIS HYDROCHLORIDE
     Indication: Amyloidosis
     Dosage: 2 DOSAGE FORM, BID
     Route: 048
     Dates: start: 20251029

REACTIONS (10)
  - Dysphagia [Unknown]
  - Confusional state [Unknown]
  - Mental status changes [Unknown]
  - Abnormal behaviour [Unknown]
  - Dysuria [Unknown]
  - Toxic encephalopathy [Unknown]
  - Pneumonitis aspiration [Unknown]
  - Leukopenia [Unknown]
  - Haemoglobin abnormal [Unknown]
  - Wrong technique in product usage process [Unknown]
